FAERS Safety Report 14314028 (Version 1)
Quarter: 2017Q4

REPORT INFORMATION
  Report Type: Spontaneous
  Country: US (occurrence: US)
  Receive Date: 20171220
  Receipt Date: 20171220
  Transmission Date: 20180321
  Serious: No
  Sender: FDA-Public Use
  Company Number: None

PATIENT
  Age: 60 Year
  Sex: Male

DRUGS (1)
  1. HUMIRA [Suspect]
     Active Substance: ADALIMUMAB
     Indication: PSORIASIS
     Dosage: 2 PENS DAY 1 THEN 1 PEN DAY 8 AS DIRECTED SUBCUTANEOUSLY
     Route: 058
     Dates: start: 20171031

REACTIONS (1)
  - Headache [None]
